FAERS Safety Report 11790907 (Version 1)
Quarter: 2015Q4

REPORT INFORMATION
  Report Type: Spontaneous
  Country: US (occurrence: US)
  Receive Date: 20151201
  Receipt Date: 20151201
  Transmission Date: 20160305
  Serious: No
  Sender: FDA-Public Use
  Company Number: US-SA-2014SA180413

PATIENT
  Age: 74 Year
  Sex: Female

DRUGS (2)
  1. RENVELA [Suspect]
     Active Substance: SEVELAMER CARBONATE
     Dosage: 1 TAB THREE TIMES A DAY
     Route: 048
  2. RENVELA [Suspect]
     Active Substance: SEVELAMER CARBONATE
     Dosage: 2 TABLETS THREE TIMES A DAY
     Route: 048

REACTIONS (1)
  - Diarrhoea [Unknown]
